FAERS Safety Report 5128612-0 (Version None)
Quarter: 2006Q4

REPORT INFORMATION
  Report Type: 
  Country: None (occurrence: None)
  Receive Date: 20061017
  Receipt Date: 20060626
  Transmission Date: 20070319
  Serious: Yes (Death, Life-Threatening, Hospitalization, Disabling, Other)
  Sender: FDA-Public Use
  Company Number: 2006AP02933

PATIENT
  Age: 17691 Day
  Sex: Female

DRUGS (13)
  1. IRESSA [Suspect]
     Indication: LIP AND/OR ORAL CAVITY CANCER RECURRENT
     Route: 048
     Dates: start: 20050825
  2. IRESSA [Suspect]
     Route: 048
     Dates: start: 20050825
  3. MULTIVITAMIN [Concomitant]
     Indication: MEDICAL DIET
     Route: 048
     Dates: start: 20050821
  4. CLOGEN [Concomitant]
     Indication: INFECTION PROPHYLAXIS
     Route: 048
     Dates: start: 20050822
  5. POTASSIUM CHLORIDE [Concomitant]
     Indication: HYPOKALAEMIA
     Route: 048
     Dates: start: 20050823
  6. CLOTRIMAZOLE [Concomitant]
     Indication: INFECTION PROPHYLAXIS
     Route: 048
     Dates: start: 20060318
  7. TEGRETOL [Concomitant]
     Indication: PAIN IN JAW
     Route: 048
     Dates: start: 20060320
  8. ELTROXIN [Concomitant]
     Indication: HYPOTHYROIDISM
     Route: 048
     Dates: start: 20060318
  9. RANITIDINE [Concomitant]
     Indication: PROPHYLAXIS
     Route: 048
     Dates: start: 20060318
  10. BETADINE [Concomitant]
     Indication: INFECTION PROPHYLAXIS
     Dates: start: 20060318
  11. PACLITAXEL [Concomitant]
     Indication: TONGUE NEOPLASM MALIGNANT STAGE UNSPECIFIED
     Dosage: 3 CYCLES RECEIVED
     Route: 042
     Dates: start: 20050613, end: 20050724
  12. CISPLATIN [Concomitant]
     Indication: TONGUE NEOPLASM MALIGNANT STAGE UNSPECIFIED
     Dosage: 3 CYCLES
     Route: 042
     Dates: start: 20050613, end: 20050726
  13. FLUOROURACIL [Concomitant]
     Indication: TONGUE NEOPLASM MALIGNANT STAGE UNSPECIFIED
     Route: 042
     Dates: start: 20050613, end: 20050727

REACTIONS (5)
  - BLOOD SODIUM DECREASED [None]
  - GRAND MAL CONVULSION [None]
  - HAEMORRHAGE INTRACRANIAL [None]
  - ORAL INTAKE REDUCED [None]
  - THROAT IRRITATION [None]
